FAERS Safety Report 18568502 (Version 1)
Quarter: 2020Q4

REPORT INFORMATION
  Report Type: Spontaneous
  Country: US (occurrence: US)
  Receive Date: 20201202
  Receipt Date: 20201202
  Transmission Date: 20210114
  Serious: Yes (Hospitalization, Other)
  Sender: FDA-Public Use
  Company Number: US-ABBVIE-20K-163-3671823-00

PATIENT
  Age: 56 Year
  Sex: Female

DRUGS (2)
  1. HUMIRA [Suspect]
     Active Substance: ADALIMUMAB
     Indication: RHEUMATOID ARTHRITIS
     Route: 058
     Dates: start: 2018, end: 2018
  2. HUMIRA [Suspect]
     Active Substance: ADALIMUMAB
     Route: 058
     Dates: start: 202010

REACTIONS (11)
  - Limb injury [Unknown]
  - Drug ineffective [Not Recovered/Not Resolved]
  - Device issue [Recovered/Resolved]
  - Toe operation [Unknown]
  - Arthralgia [Not Recovered/Not Resolved]
  - Osteoarthritis [Not Recovered/Not Resolved]
  - Back injury [Unknown]
  - Neuropathy peripheral [Unknown]
  - Joint injury [Unknown]
  - Road traffic accident [Unknown]
  - Back pain [Unknown]

NARRATIVE: CASE EVENT DATE: 20181021
